FAERS Safety Report 20492363 (Version 2)
Quarter: 2022Q1

REPORT INFORMATION
  Report Type: Spontaneous
  Country: US (occurrence: None)
  Receive Date: 20220218
  Receipt Date: 20220314
  Transmission Date: 20220423
  Serious: No
  Sender: FDA-Public Use
  Company Number: 2022A055720

PATIENT
  Sex: Female
  Weight: 79.4 kg

DRUGS (2)
  1. BUDESONIDE\FORMOTEROL\GLYCOPYRRONIUM [Suspect]
     Active Substance: BUDESONIDE\FORMOTEROL\GLYCOPYRRONIUM
     Indication: Chronic obstructive pulmonary disease
     Dosage: 160 MCG/7.2MCG/4.8MCG,2 PUFFS BID
     Route: 055
  2. ALBUTEROL [Concomitant]
     Active Substance: ALBUTEROL

REACTIONS (7)
  - Memory impairment [Unknown]
  - Grip strength decreased [Unknown]
  - Chest discomfort [Unknown]
  - Nervousness [Unknown]
  - Tremor [Unknown]
  - Wrong technique in product usage process [Unknown]
  - Device defective [Unknown]
